FAERS Safety Report 25576398 (Version 1)
Quarter: 2025Q3

REPORT INFORMATION
  Report Type: Spontaneous
  Country: US (occurrence: US)
  Receive Date: 20250718
  Receipt Date: 20250718
  Transmission Date: 20251020
  Serious: No
  Sender: CIPLA
  Company Number: US-CIPLA LTD.-2025US08566

PATIENT

DRUGS (3)
  1. DICLOFENAC [Suspect]
     Active Substance: DICLOFENAC
     Indication: Peripheral swelling
     Dosage: UNK, TID (3 TIMES A DAY)
     Route: 061
  2. DICLOFENAC [Suspect]
     Active Substance: DICLOFENAC
     Indication: Skin fissures
  3. DICLOFENAC [Suspect]
     Active Substance: DICLOFENAC
     Indication: Localised infection

REACTIONS (1)
  - Off label use [Unknown]
